FAERS Safety Report 16922662 (Version 1)
Quarter: 2019Q4

REPORT INFORMATION
  Report Type: Spontaneous
  Country: US (occurrence: US)
  Receive Date: 20191016
  Receipt Date: 20191016
  Transmission Date: 20200122
  Serious: Yes (Hospitalization)
  Sender: FDA-Public Use
  Company Number: US-SUN PHARMACEUTICAL INDUSTRIES LTD-2019R1-223172

PATIENT
  Age: 35 Year
  Sex: Female

DRUGS (2)
  1. OXYCODONE [Suspect]
     Active Substance: OXYCODONE
     Indication: PRODUCT USED FOR UNKNOWN INDICATION
     Route: 065
  2. FENTANYL. [Suspect]
     Active Substance: FENTANYL
     Indication: PRODUCT USED FOR UNKNOWN INDICATION
     Route: 065

REACTIONS (14)
  - Ejection fraction decreased [Recovering/Resolving]
  - Diarrhoea [Recovering/Resolving]
  - Haemodynamic instability [Recovering/Resolving]
  - Cardiogenic shock [Unknown]
  - Dizziness [Recovering/Resolving]
  - Hyperhidrosis [Recovering/Resolving]
  - Blood lactic acid increased [Recovering/Resolving]
  - Drug withdrawal syndrome [Unknown]
  - Nausea [Recovering/Resolving]
  - Cardiac failure [Unknown]
  - Vomiting [Recovering/Resolving]
  - Stress cardiomyopathy [Unknown]
  - Feeling cold [Recovering/Resolving]
  - Drug abuse [Unknown]
